FAERS Safety Report 8297743 (Version 2)
Quarter: 2012Q4

REPORT INFORMATION
  Report Type: 
  Country: US (occurrence: US)
  Receive Date: 20111219
  Receipt Date: 20120910
  Transmission Date: 20130627
  Serious: Yes (Hospitalization)
  Sender: FDA-Public Use
  Company Number: US-US-EMD SERONO, INC.-7044790

PATIENT
  Age: 53 Year
  Sex: Male

DRUGS (1)
  1. REBIF [Suspect]
     Indication: MULTIPLE SCLEROSIS
     Route: 058
     Dates: start: 20100827

REACTIONS (5)
  - Cellulitis [Recovering/Resolving]
  - Excoriation [Recovering/Resolving]
  - Fall [Recovering/Resolving]
  - Tinea pedis [Unknown]
  - Urticaria [Unknown]
